FAERS Safety Report 4585421-9 (Version None)
Quarter: 2005Q1

REPORT INFORMATION
  Report Type: 
  Country: None (occurrence: None)
  Receive Date: 20050217
  Receipt Date: 20050114
  Transmission Date: 20050727
  Serious: Yes (Hospitalization)
  Sender: FDA-Public Use
  Company Number: BE-BRISTOL-MYERS SQUIBB COMPANY-12825212

PATIENT
  Age: 73 Year
  Sex: Female
  Weight: 76 kg

DRUGS (16)
  1. PACLITAXEL [Suspect]
     Indication: OVARIAN CANCER
     Route: 042
     Dates: start: 20040902, end: 20040902
  2. CARBOPLATIN [Suspect]
     Indication: OVARIAN CANCER
     Route: 042
     Dates: start: 20040902, end: 20040902
  3. GLAZIDIM [Concomitant]
     Route: 042
     Dates: start: 20040908, end: 20040914
  4. NEUPOGEN [Concomitant]
     Dosage: DOSE=^48 MIO^
     Route: 058
     Dates: start: 20040908, end: 20040911
  5. SIPRALEXA [Concomitant]
     Route: 048
     Dates: end: 20041005
  6. SOTALOL HCL [Concomitant]
     Route: 048
  7. STRUMAZOL [Concomitant]
     Route: 048
  8. LANOXIN [Concomitant]
     Route: 048
  9. DUPHALAC [Concomitant]
     Route: 048
     Dates: start: 20040909
  10. ZYPREXA [Concomitant]
     Route: 048
     Dates: start: 20040918, end: 20041005
  11. TAVANIC [Concomitant]
     Route: 048
     Dates: start: 20040919, end: 20040921
  12. TAVANIC [Concomitant]
     Route: 048
     Dates: start: 20040922, end: 20040923
  13. TAVANIC [Concomitant]
     Route: 048
     Dates: start: 20041005, end: 20041011
  14. AUGMENTIN '125' [Concomitant]
     Route: 042
     Dates: start: 20040923, end: 20040927
  15. BEFACT [Concomitant]
     Dates: start: 20040921
  16. VITALUX [Concomitant]
     Route: 048
     Dates: end: 20041008

REACTIONS (2)
  - ENCEPHALOPATHY [None]
  - FEBRILE NEUTROPENIA [None]
